FAERS Safety Report 4850799-5 (Version None)
Quarter: 2005Q4

REPORT INFORMATION
  Report Type: 
  Country: None (occurrence: None)
  Receive Date: 20051208
  Receipt Date: 20051122
  Transmission Date: 20060501
  Serious: Yes (Life-Threatening, Hospitalization, Other)
  Sender: FDA-Public Use
  Company Number: GB200511002328

PATIENT
  Age: 24 Year
  Sex: Female
  Weight: 58 kg

DRUGS (5)
  1. CYMBALTA [Suspect]
     Indication: DEPRESSION
     Dosage: 60 MG, ORAL
     Route: 048
     Dates: start: 20051011, end: 20051107
  2. DIAZEPAM [Concomitant]
  3. SERTRALINE [Concomitant]
  4. ZOLPIDEM TARTRATE [Concomitant]
  5. BUSPIRONE HCL [Concomitant]

REACTIONS (3)
  - LOWER RESPIRATORY TRACT INFECTION [None]
  - NEUTROPHIL COUNT DECREASED [None]
  - WHITE BLOOD CELL COUNT DECREASED [None]
